FAERS Safety Report 5854197-7 (Version None)
Quarter: 2008Q3

REPORT INFORMATION
  Report Type: 
  Country: None (occurrence: None)
  Receive Date: 20080822
  Receipt Date: 20080814
  Transmission Date: 20090109
  Serious: No
  Sender: FDA-Public Use
  Company Number: US-ASTRAZENECA-2008UW16676

PATIENT
  Sex: Female
  Weight: 56 kg

DRUGS (3)
  1. CRESTOR [Suspect]
     Indication: LOW DENSITY LIPOPROTEIN INCREASED
     Route: 048
  2. CRESTOR [Suspect]
     Indication: HIGH DENSITY LIPOPROTEIN DECREASED
     Route: 048
  3. LOPRESSOR [Concomitant]

REACTIONS (3)
  - ALANINE AMINOTRANSFERASE INCREASED [None]
  - ASPARTATE AMINOTRANSFERASE INCREASED [None]
  - BLOOD ALKALINE PHOSPHATASE INCREASED [None]
